FAERS Safety Report 8633091 (Version 5)
Quarter: 2013Q1

REPORT INFORMATION
  Report Type: Spontaneous
  Country: JP (occurrence: JP)
  Receive Date: 20120625
  Receipt Date: 20130114
  Transmission Date: 20140127
  Serious: Yes (Life-Threatening, Hospitalization)
  Sender: FDA-Public Use
  Company Number: JP-B.I. PHARMACEUTICALS,INC./RIDGEFIELD-2012-BP-13919NB

PATIENT
  Age: 70 Year
  Sex: Male
  Weight: 52 kg

DRUGS (5)
  1. PRAZAXA [Suspect]
     Indication: ATRIAL FIBRILLATION
     Dosage: 220 MG
     Route: 048
     Dates: end: 20120330
  2. ALEVIATIN [Suspect]
     Indication: EPILEPSY
     Dosage: 500 MG
     Route: 042
     Dates: start: 20120329, end: 20120330
  3. DEPAKENE-R [Concomitant]
     Dosage: 600 MG
     Route: 048
     Dates: end: 20120329
  4. BAYASPIRIN [Concomitant]
     Dosage: 100 MG
     Route: 048
     Dates: end: 20120329
  5. URITOS [Concomitant]
     Dosage: 0.2 MG
     Route: 048
     Dates: end: 20120329

REACTIONS (3)
  - Cerebral artery embolism [Recovered/Resolved with Sequelae]
  - Convulsion [Unknown]
  - Drug interaction [Unknown]
